FAERS Safety Report 9982131 (Version 1)
Quarter: 2014Q1

REPORT INFORMATION
  Report Type: Report from Study
  Country: US (occurrence: US)
  Receive Date: 20140307
  Receipt Date: 20140307
  Transmission Date: 20141002
  Serious: No
  Sender: FDA-Public Use
  Company Number: US-ABBVIE-13P-163-1176913-00

PATIENT
  Sex: Female
  Weight: 90.8 kg

DRUGS (7)
  1. HUMIRA [Suspect]
     Indication: CROHN^S DISEASE
     Dates: start: 2013, end: 201306
  2. HUMIRA [Suspect]
     Indication: ARTHRITIS
     Dates: start: 201306, end: 201310
  3. PENTASA [Concomitant]
     Indication: CROHN^S DISEASE
  4. UNNAMED MEDICATION [Concomitant]
     Indication: CONTRACEPTION
  5. VITAMINS NOS [Concomitant]
     Indication: VITAMIN SUPPLEMENTATION
  6. PROZAC [Concomitant]
     Indication: DEPRESSION
  7. AZULFIDINE [Concomitant]
     Indication: ARTHRITIS

REACTIONS (3)
  - Injection site rash [Not Recovered/Not Resolved]
  - Injection site pain [Not Recovered/Not Resolved]
  - Drug ineffective [Not Recovered/Not Resolved]
